FAERS Safety Report 26041683 (Version 1)
Quarter: 2025Q4

REPORT INFORMATION
  Report Type: Report from Study
  Country: US (occurrence: US)
  Receive Date: 20251113
  Receipt Date: 20251113
  Transmission Date: 20260118
  Serious: Yes (Other)
  Sender: MYLAN
  Company Number: US-MYLANLABS-2025M1096082

PATIENT
  Age: 80 Year
  Sex: Male
  Weight: 92.8 kg

DRUGS (8)
  1. YUPELRI [Suspect]
     Active Substance: REVEFENACIN
     Indication: Chronic obstructive pulmonary disease
     Dosage: 175 PER 3 MICROGRAM PER MILLILITRE, QD (ONCE DAILY VIA NEBULIZER)
     Dates: start: 20251024, end: 20251110
  2. YUPELRI [Suspect]
     Active Substance: REVEFENACIN
     Dosage: 175 PER 3 MICROGRAM PER MILLILITRE, QD (ONCE DAILY VIA NEBULIZER)
     Route: 065
     Dates: start: 20251024, end: 20251110
  3. YUPELRI [Suspect]
     Active Substance: REVEFENACIN
     Dosage: 175 PER 3 MICROGRAM PER MILLILITRE, QD (ONCE DAILY VIA NEBULIZER)
     Route: 065
     Dates: start: 20251024, end: 20251110
  4. YUPELRI [Suspect]
     Active Substance: REVEFENACIN
     Dosage: 175 PER 3 MICROGRAM PER MILLILITRE, QD (ONCE DAILY VIA NEBULIZER)
     Dates: start: 20251024, end: 20251110
  5. ARFORMOTEROL [Concomitant]
     Active Substance: ARFORMOTEROL
     Dosage: UNK
  6. ARFORMOTEROL [Concomitant]
     Active Substance: ARFORMOTEROL
     Dosage: UNK
     Route: 065
  7. ARFORMOTEROL [Concomitant]
     Active Substance: ARFORMOTEROL
     Dosage: UNK
     Route: 065
  8. ARFORMOTEROL [Concomitant]
     Active Substance: ARFORMOTEROL
     Dosage: UNK

REACTIONS (1)
  - Chest pain [Recovered/Resolved]

NARRATIVE: CASE EVENT DATE: 20251024
